FAERS Safety Report 20323043 (Version 2)
Quarter: 2022Q1

REPORT INFORMATION
  Report Type: Report from Study
  Country: US (occurrence: US)
  Receive Date: 20220111
  Receipt Date: 20220114
  Transmission Date: 20220423
  Serious: Yes (Life-Threatening, Hospitalization)
  Sender: FDA-Public Use
  Company Number: US-NOVARTISPH-NVSC2022US004247

PATIENT
  Sex: Male

DRUGS (2)
  1. MEKINIST [Suspect]
     Active Substance: TRAMETINIB DIMETHYL SULFOXIDE
     Indication: Thyroid cancer
     Dosage: UNK
     Route: 048
     Dates: start: 20190930, end: 202001
  2. TAFINLAR [Suspect]
     Active Substance: DABRAFENIB MESYLATE
     Indication: Thyroid cancer
     Dosage: UNK
     Route: 048
     Dates: start: 20190930, end: 202001

REACTIONS (3)
  - Gastric ulcer perforation [Recovering/Resolving]
  - Abdominal pain upper [Recovering/Resolving]
  - Feeding disorder [Recovering/Resolving]
